FAERS Safety Report 5458878-9 (Version None)
Quarter: 2007Q3

REPORT INFORMATION
  Report Type: 
  Country: None (occurrence: None)
  Receive Date: 20070813
  Receipt Date: 20061214
  Transmission Date: 20080115
  Serious: Yes (Hospitalization)
  Sender: FDA-Public Use
  Company Number: 20063322

PATIENT
  Sex: Female

DRUGS (1)
  1. LIORESAL [Suspect]
     Indication: MUSCLE SPASTICITY
     Dosage: MCG DAILY; INTRATHECAL
     Route: 039

REACTIONS (5)
  - CONFUSIONAL STATE [None]
  - HYPOTONIA [None]
  - NAUSEA [None]
  - OVERDOSE [None]
  - VOMITING [None]
